FAERS Safety Report 14419007 (Version 1)
Quarter: 2018Q1

REPORT INFORMATION
  Report Type: Spontaneous
  Country: US (occurrence: US)
  Receive Date: 20180122
  Receipt Date: 20180122
  Transmission Date: 20180509
  Serious: Yes (Hospitalization)
  Sender: FDA-Public Use
  Company Number: None

PATIENT
  Age: 57 Year
  Sex: Female
  Weight: 54 kg

DRUGS (2)
  1. OLAPARIB. [Suspect]
     Active Substance: OLAPARIB
     Indication: OVARIAN CANCER
     Route: 048
     Dates: start: 20170719, end: 20171105
  2. TREMELIMUMAB. [Suspect]
     Active Substance: TREMELIMUMAB
     Indication: OVARIAN CANCER
     Dosage: 645 MG Q 28 DAYS IV
     Route: 042
     Dates: start: 20170621, end: 20171011

REACTIONS (4)
  - Colitis [None]
  - Large intestine perforation [None]
  - Pain [None]
  - Enteritis [None]

NARRATIVE: CASE EVENT DATE: 20180105
